FAERS Safety Report 19146631 (Version 2)
Quarter: 2021Q2

REPORT INFORMATION
  Report Type: Spontaneous
  Country: GB (occurrence: GB)
  Receive Date: 20210416
  Receipt Date: 20210519
  Transmission Date: 20210717
  Serious: Yes (Hospitalization, Other)
  Sender: FDA-Public Use
  Company Number: GB-PERRIGO-21GB005007

PATIENT

DRUGS (1)
  1. PARACETAMOL [Suspect]
     Active Substance: ACETAMINOPHEN
     Indication: BECKER^S MUSCULAR DYSTROPHY
     Dosage: UP TO FOUR TIMES A DAY. HE RECEIVED EIGHT GRAMS OF PARACETAMOL OVER FOUR DAYS IN LIQUID FORM
     Route: 048

REACTIONS (1)
  - Drug-induced liver injury [Recovered/Resolved]
